FAERS Safety Report 9586071 (Version 1)
Quarter: 2013Q4

REPORT INFORMATION
  Report Type: Spontaneous
  Country: IN (occurrence: None)
  Receive Date: 20131001
  Receipt Date: 20131001
  Transmission Date: 20140711
  Serious: Yes (Death)
  Sender: FDA-Public Use
  Company Number: CTI_01596_2013

PATIENT
  Sex: Female

DRUGS (3)
  1. CUROSURF [Suspect]
     Indication: NEONATAL RESPIRATORY DISTRESS SYNDROME
     Route: 039
  2. CUROSURF [Suspect]
     Indication: PREMATURE BABY
     Route: 039
  3. ANTIBIOTICS [Concomitant]

REACTIONS (2)
  - Mechanical ventilation complication [None]
  - Oxygen consumption increased [None]
